FAERS Safety Report 9261841 (Version 1)
Quarter: 2013Q2

REPORT INFORMATION
  Report Type: Spontaneous
  Country: NZ (occurrence: NZ)
  Receive Date: 20130429
  Receipt Date: 20130429
  Transmission Date: 20140414
  Serious: Yes (Other)
  Sender: FDA-Public Use
  Company Number: NZ-MYLANLABS-2013S1008327

PATIENT
  Sex: Female

DRUGS (2)
  1. LOXALATE [Suspect]
     Indication: AFFECTIVE DISORDER
     Route: 048
  2. EPILIM [Concomitant]
     Indication: PRODUCT USED FOR UNKNOWN INDICATION

REACTIONS (4)
  - Somnolence [Not Recovered/Not Resolved]
  - Hallucination, auditory [Not Recovered/Not Resolved]
  - Mood altered [Not Recovered/Not Resolved]
  - Personality disorder [Not Recovered/Not Resolved]
